FAERS Safety Report 9401979 (Version 2)
Quarter: 2013Q3

REPORT INFORMATION
  Report Type: Spontaneous
  Country: US (occurrence: US)
  Receive Date: 20130716
  Receipt Date: 20130826
  Transmission Date: 20140515
  Serious: No
  Sender: FDA-Public Use
  Company Number: US-PFIZER INC-2012049321

PATIENT
  Sex: Female

DRUGS (1)
  1. CALAN SR [Suspect]
     Dosage: 0.5 DF, 1X/DAY
     Route: 048

REACTIONS (1)
  - Speech disorder [Unknown]
